FAERS Safety Report 21469876 (Version 2)
Quarter: 2025Q3

REPORT INFORMATION
  Report Type: Report from Study
  Country: US (occurrence: US)
  Receive Date: 20221018
  Receipt Date: 20250715
  Transmission Date: 20251020
  Serious: Yes (Hospitalization, Other)
  Sender: NOVARTIS
  Company Number: US-NOVARTISPH-NVSC2022US233107

PATIENT
  Sex: Male

DRUGS (2)
  1. ENTRESTO [Suspect]
     Active Substance: SACUBITRIL\VALSARTAN
     Indication: Product used for unknown indication
     Dosage: 0.5 DOSAGE FORM, BID (49/51 MG)
     Route: 048
  2. ENTRESTO [Suspect]
     Active Substance: SACUBITRIL\VALSARTAN
     Route: 065

REACTIONS (4)
  - Fall [Unknown]
  - Atrial fibrillation [Unknown]
  - Hypotension [Unknown]
  - Wrong technique in product usage process [Unknown]
